FAERS Safety Report 19034650 (Version 1)
Quarter: 2021Q1

REPORT INFORMATION
  Report Type: Spontaneous
  Country: US (occurrence: US)
  Receive Date: 20210319
  Receipt Date: 20210319
  Transmission Date: 20210420
  Serious: No
  Sender: FDA-Public Use
  Company Number: US-INCYTE CORPORATION-2021IN001200

PATIENT

DRUGS (1)
  1. JAKAFI [Suspect]
     Active Substance: RUXOLITINIB
     Dosage: 20 MILLIGRAM, DISPENSING QUANTITY?90 FOR A 30 DAY SUPPLY.
     Route: 065

REACTIONS (2)
  - Product dispensing issue [Unknown]
  - Off label use [Unknown]
